FAERS Safety Report 23356596 (Version 1)
Quarter: 2024Q1

REPORT INFORMATION
  Report Type: Spontaneous
  Country: US (occurrence: US)
  Receive Date: 20240102
  Receipt Date: 20240102
  Transmission Date: 20240410
  Serious: No
  Sender: FDA-Public Use
  Company Number: US-JNJFOC-20231172434

PATIENT
  Age: 73 Year
  Sex: Female

DRUGS (10)
  1. TYLENOL [Suspect]
     Active Substance: ACETAMINOPHEN
     Indication: Pain in extremity
     Route: 065
  2. TYLENOL [Suspect]
     Active Substance: ACETAMINOPHEN
     Indication: Pain
  3. ORENITRAM [Concomitant]
     Active Substance: TREPROSTINIL
     Indication: Pulmonary arterial hypertension
     Route: 048
  4. ORENITRAM [Concomitant]
     Active Substance: TREPROSTINIL
     Route: 048
  5. TREPROSTINIL [Concomitant]
     Active Substance: TREPROSTINIL
     Indication: Pulmonary arterial hypertension
     Dosage: 0.375 MG, TID, ORAL USE
     Route: 048
     Dates: start: 2023, end: 2023
  6. TREPROSTINIL [Concomitant]
     Active Substance: TREPROSTINIL
     Dosage: 0.125 MG, TID, ORAL USE
     Route: 048
     Dates: start: 2023, end: 2023
  7. TREPROSTINIL [Concomitant]
     Active Substance: TREPROSTINIL
     Dosage: 0.5 MG, TID, ORAL USE
     Route: 048
     Dates: start: 2023, end: 2023
  8. TREPROSTINIL [Concomitant]
     Active Substance: TREPROSTINIL
     Dosage: 0.75 MG, TID, ORAL USE
     Route: 048
     Dates: start: 2023, end: 2023
  9. TREPROSTINIL [Concomitant]
     Active Substance: TREPROSTINIL
     Dosage: 1.125 MG, TID, ORAL USE
     Route: 048
     Dates: start: 2023
  10. TREPROSTINIL [Concomitant]
     Active Substance: TREPROSTINIL
     Route: 048
     Dates: start: 202308

REACTIONS (1)
  - Product use in unapproved indication [Unknown]
